FAERS Safety Report 8406537-2 (Version None)
Quarter: 2012Q2

REPORT INFORMATION
  Report Type: 
  Country: None (occurrence: None)
  Receive Date: 20120604
  Receipt Date: 20120531
  Transmission Date: 20120825
  Serious: Yes (Hospitalization, Other)
  Sender: FDA-Public Use
  Company Number: US-AMGEN-USASP2011053748

PATIENT
  Age: 40 Year
  Sex: Female
  Weight: 73.469 kg

DRUGS (1)
  1. ENBREL [Suspect]
     Indication: RHEUMATOID ARTHRITIS
     Dosage: 50 MG, Q2WK
     Dates: start: 20100915

REACTIONS (7)
  - PLEURAL EFFUSION [None]
  - UPPER RESPIRATORY TRACT INFECTION [None]
  - JOINT SWELLING [None]
  - ARTHRALGIA [None]
  - SINUSITIS [None]
  - PULMONARY EMBOLISM [None]
  - PNEUMONIA [None]
